FAERS Safety Report 12274663 (Version 1)
Quarter: 2016Q2

REPORT INFORMATION
  Report Type: Spontaneous
  Country: US (occurrence: US)
  Receive Date: 20160415
  Receipt Date: 20160415
  Transmission Date: 20160815
  Serious: No
  Sender: FDA-Public Use
  Company Number: US-ALLERGAN-1507492US

PATIENT
  Age: 52 Year
  Sex: Female
  Weight: 87.98 kg

DRUGS (8)
  1. GEODON [Concomitant]
     Active Substance: ZIPRASIDONE HYDROCHLORIDE\ZIPRASIDONE MESYLATE
     Indication: BIPOLAR DISORDER
     Dosage: 80 MG, 1 DAILY
     Route: 048
  2. SIMVASTATIN. [Concomitant]
     Active Substance: SIMVASTATIN
     Indication: PRODUCT USED FOR UNKNOWN INDICATION
  3. DORZOLAMIDE [Concomitant]
     Active Substance: DORZOLAMIDE
     Indication: OPEN ANGLE GLAUCOMA
     Dosage: 2 GTT, BID
     Route: 047
  4. KLONOPIN [Concomitant]
     Active Substance: CLONAZEPAM
     Indication: ANXIETY
     Dosage: 1.5 MG, DAILY
     Route: 048
  5. ATENOLOL. [Concomitant]
     Active Substance: ATENOLOL
     Indication: HYPERTENSION
     Dosage: 25 MG, DAILY
     Route: 048
  6. GEODON [Concomitant]
     Active Substance: ZIPRASIDONE HYDROCHLORIDE\ZIPRASIDONE MESYLATE
     Indication: BIPOLAR DISORDER
     Dosage: 20 MG, 1 DAILY
     Route: 048
  7. LUMIGAN [Suspect]
     Active Substance: BIMATOPROST
     Indication: OPEN ANGLE GLAUCOMA
     Dosage: ONE DROP INTO EACH EYE AT BEDTIME
     Route: 047
     Dates: start: 201304
  8. LITHIUM. [Concomitant]
     Active Substance: LITHIUM
     Indication: BIPOLAR DISORDER
     Dosage: 600 MG, 1 DAILY
     Route: 048

REACTIONS (5)
  - Eyelids pruritus [Not Recovered/Not Resolved]
  - Cataract [Not Recovered/Not Resolved]
  - Eye irritation [Not Recovered/Not Resolved]
  - Back pain [Not Recovered/Not Resolved]
  - Vision blurred [Not Recovered/Not Resolved]

NARRATIVE: CASE EVENT DATE: 201503
